FAERS Safety Report 5851482-X (Version None)
Quarter: 2008Q3

REPORT INFORMATION
  Report Type: 
  Country: None (occurrence: None)
  Receive Date: 20080820
  Receipt Date: 20080811
  Transmission Date: 20090109
  Serious: Yes (Hospitalization)
  Sender: FDA-Public Use
  Company Number: FR-BRISTOL-MYERS SQUIBB COMPANY-14306344

PATIENT
  Age: 56 Year
  Sex: Female

DRUGS (8)
  1. ENDOXAN [Suspect]
     Indication: RHEUMATOID ARTHRITIS
     Route: 065
  2. MABTHERA [Concomitant]
     Indication: RHEUMATOID ARTHRITIS
     Dates: start: 20060301
  3. CORTANCYL [Concomitant]
     Indication: RHEUMATOID ARTHRITIS
     Route: 048
  4. MOPRAL [Concomitant]
     Dosage: MOPRAL 20
     Route: 048
  5. ACTONEL [Concomitant]
     Dosage: ACTONEL 35
     Route: 048
  6. PROPOXYPHENE HCL AND ACETAMINOPHEN [Concomitant]
     Indication: RHEUMATOID ARTHRITIS
     Route: 048
  7. CACIT D3 [Concomitant]
     Route: 048
  8. STILNOX [Concomitant]
     Indication: INSOMNIA
     Route: 048

REACTIONS (1)
  - SIGMOIDITIS [None]
